FAERS Safety Report 9741970 (Version 2)
Quarter: 2014Q1

REPORT INFORMATION
  Report Type: Spontaneous
  Country: US (occurrence: US)
  Receive Date: 20131210
  Receipt Date: 20140107
  Transmission Date: 20141002
  Serious: No
  Sender: FDA-Public Use
  Company Number: US-PFIZER INC-2013349491

PATIENT
  Age: 83 Year
  Sex: Male
  Weight: 74.83 kg

DRUGS (2)
  1. SUTENT [Suspect]
     Indication: RENAL CELL CARCINOMA
     Dosage: 50 MG DAILY X 28 DAYS THEN OFF X 14 DAYS
     Route: 048
     Dates: start: 20130227, end: 20131213
  2. LOSARTAN [Concomitant]
     Indication: BLOOD PRESSURE ABNORMAL
     Dosage: 100 MG, 1X/DAY

REACTIONS (1)
  - Proteinuria [Unknown]
